FAERS Safety Report 13935309 (Version 2)
Quarter: 2017Q3

REPORT INFORMATION
  Report Type: Spontaneous
  Country: US (occurrence: US)
  Receive Date: 20170905
  Receipt Date: 20170922
  Transmission Date: 20171127
  Serious: No
  Sender: FDA-Public Use
  Company Number: US-BIOGEN-2017BI00450795

PATIENT
  Age: 51 Year
  Sex: Female

DRUGS (1)
  1. TYSABRI [Suspect]
     Active Substance: NATALIZUMAB
     Indication: MULTIPLE SCLEROSIS
     Dosage: INFUSED OVER 1 HR
     Route: 065
     Dates: start: 20101214

REACTIONS (6)
  - Somnolence [Unknown]
  - Drug dose omission [Unknown]
  - Fall [Recovered/Resolved]
  - Haemoglobin decreased [Not Recovered/Not Resolved]
  - Muscular weakness [Unknown]
  - Blood pressure fluctuation [Recovered/Resolved]

NARRATIVE: CASE EVENT DATE: 20170624
